FAERS Safety Report 17874155 (Version 2)
Quarter: 2020Q2

REPORT INFORMATION
  Report Type: Report from Study
  Country: AR (occurrence: AR)
  Receive Date: 20200609
  Receipt Date: 20200611
  Transmission Date: 20200714
  Serious: Yes (Death, Other)
  Sender: FDA-Public Use
  Company Number: AR-TAKEDA-2020TUS025271

PATIENT
  Age: 60 Year
  Sex: Male

DRUGS (2)
  1. LENALIDOMIDE [Concomitant]
     Active Substance: LENALIDOMIDE
     Dosage: UNK
     Route: 065
     Dates: end: 20200525
  2. IXAZOMIB [Suspect]
     Active Substance: IXAZOMIB
     Indication: PLASMA CELL MYELOMA
     Dosage: 3 MILLIGRAM
     Route: 048
     Dates: start: 202002

REACTIONS (7)
  - Incontinence [Unknown]
  - Death [Fatal]
  - Depressed mood [Unknown]
  - Bone pain [Unknown]
  - Polyp [Unknown]
  - Apraxia [Unknown]
  - Epistaxis [Unknown]

NARRATIVE: CASE EVENT DATE: 20200606
